FAERS Safety Report 8482398-0 (Version None)
Quarter: 2012Q3

REPORT INFORMATION
  Report Type: 
  Country: None (occurrence: None)
  Receive Date: 20120702
  Receipt Date: 20120622
  Transmission Date: 20120928
  Serious: Yes (Death, Hospitalization)
  Sender: FDA-Public Use
  Company Number: US-GLAXOSMITHKLINE-A0809152A

PATIENT
  Age: 56 Year
  Sex: Male

DRUGS (3)
  1. LIPITOR [Concomitant]
  2. AVANDIA [Suspect]
     Indication: DIABETES MELLITUS
     Dosage: 8MG PER DAY
     Route: 048
     Dates: start: 19991101, end: 20030326
  3. ANTIHYPERTENSIVE [Concomitant]

REACTIONS (2)
  - HEART INJURY [None]
  - CARDIO-RESPIRATORY ARREST [None]
